FAERS Safety Report 21323985 (Version 2)
Quarter: 2022Q3

REPORT INFORMATION
  Report Type: Report from Study
  Country: US (occurrence: US)
  Receive Date: 20220912
  Receipt Date: 20220916
  Transmission Date: 20221026
  Serious: Yes (Hospitalization)
  Sender: FDA-Public Use
  Company Number: US-EXELIXIS-XL18422055145

PATIENT

DRUGS (3)
  1. CABOZANTINIB [Suspect]
     Active Substance: CABOZANTINIB
     Indication: Malignant melanoma
     Dosage: 40 MG, QD
     Route: 048
     Dates: start: 20220808
  2. NIVOLUMAB [Suspect]
     Active Substance: NIVOLUMAB
     Indication: Malignant melanoma
     Dosage: 3 MG/KG, Q3WEEKS
     Route: 042
     Dates: start: 20220808
  3. IPILIMUMAB [Suspect]
     Active Substance: IPILIMUMAB
     Indication: Malignant melanoma
     Dosage: 1 MG/KG, Q3WEEKS
     Route: 042
     Dates: start: 20220808

REACTIONS (4)
  - Cardiac failure [Recovering/Resolving]
  - Confusional state [Recovering/Resolving]
  - Diarrhoea [Recovered/Resolved]
  - Dehydration [Unknown]

NARRATIVE: CASE EVENT DATE: 20220817
